FAERS Safety Report 5026201-X (Version None)
Quarter: 2006Q2

REPORT INFORMATION
  Report Type: 
  Country: None (occurrence: None)
  Receive Date: 20060608
  Receipt Date: 20060601
  Transmission Date: 20061013
  Serious: Yes (Hospitalization)
  Sender: FDA-Public Use
  Company Number: 2006-02227

PATIENT
  Age: 21 Year
  Sex: Female

DRUGS (4)
  1. ETOPOSIDE [Suspect]
     Indication: CHEMOTHERAPY
     Dosage: 100 MG/M2, DAILY X 3 DAYS
  2. CARBOPLATIN [Suspect]
     Indication: CHEMOTHERAPY
     Dosage: 500 MG/M2, DAILY X 3 DAYS
  3. THIOTEPA [Suspect]
     Indication: CHEMOTHERAPY
     Dosage: 300 MG/M2, DAILY X 3 DAYS
  4. CYCLOPHOSPHAMIDE [Suspect]
     Indication: CHEMOTHERAPY
     Dosage: 2 G/M2, DAILY X 2 DAYS

REACTIONS (5)
  - APALLIC SYNDROME [None]
  - COGNITIVE DISORDER [None]
  - ENCEPHALOPATHY [None]
  - HYDROCEPHALUS [None]
  - NEOPLASM RECURRENCE [None]
